FAERS Safety Report 8882105 (Version 1)
Quarter: 2012Q4

REPORT INFORMATION
  Report Type: 
  Country: CH (occurrence: CH)
  Receive Date: 20121102
  Receipt Date: 20121102
  Transmission Date: 20130627
  Serious: Yes (Congenital Anomaly, Other)
  Sender: FDA-Public Use
  Company Number: CH-PFIZER INC-2012272670

PATIENT
  Sex: Male

DRUGS (3)
  1. PANTOZOL [Suspect]
     Indication: HEARTBURN
     Dosage: UNK
     Route: 064
  2. TRETINAC [Suspect]
     Indication: ACNE
     Dosage: 20 mg, 1x/day
     Route: 064
     Dates: end: 20110929
  3. ALUCOL [Suspect]
     Indication: HEARTBURN
     Dosage: UNK
     Route: 064

REACTIONS (4)
  - Maternal exposure timing unspecified [Unknown]
  - Pulmonary hypertension [Unknown]
  - Atrial septal defect [Unknown]
  - Patent ductus arteriosus [Unknown]
